FAERS Safety Report 6548591-9 (Version None)
Quarter: 2010Q1

REPORT INFORMATION
  Report Type: 
  Country: None (occurrence: None)
  Receive Date: 20100124
  Receipt Date: 20090914
  Transmission Date: 20100710
  Serious: No
  Sender: FDA-Public Use
  Company Number: US-ALLERGAN-0912831US

PATIENT
  Age: 74 Year
  Sex: Male

DRUGS (4)
  1. RESTASIS [Suspect]
     Indication: DRY EYE
     Dosage: 1 GTT, BID
     Dates: start: 20090701
  2. REFRESH [Concomitant]
  3. OPTIVE [Concomitant]
  4. SYSTANE [Concomitant]

REACTIONS (5)
  - DRY EYE [None]
  - EYE DISCHARGE [None]
  - FOREIGN BODY SENSATION IN EYES [None]
  - PHOTOPHOBIA [None]
  - VISUAL IMPAIRMENT [None]
